FAERS Safety Report 17673283 (Version 2)
Quarter: 2020Q2

REPORT INFORMATION
  Report Type: Spontaneous
  Country: IE (occurrence: IE)
  Receive Date: 20200416
  Receipt Date: 20200522
  Transmission Date: 20200713
  Serious: Yes (Hospitalization, Other)
  Sender: FDA-Public Use
  Company Number: IE-EMD SERONO-E2B_90076531

PATIENT
  Age: 36 Year
  Sex: Female

DRUGS (7)
  1. PETHIDINE [Concomitant]
     Active Substance: MEPERIDINE
     Indication: ANALGESIC THERAPY
     Route: 042
     Dates: start: 20190926
  2. SODIUM CHLORIDE. [Concomitant]
     Active Substance: SODIUM CHLORIDE
     Indication: IN VITRO FERTILISATION
     Dosage: IV NACL 0.5% 250 MLS ADMINISTERED VIA IV VENFLON AND IV GIVING SET AS PER NORMAL PROTOCOL.
     Route: 042
     Dates: start: 20190926
  3. GONAL-F [Suspect]
     Active Substance: FOLLITROPIN
     Indication: IN VITRO FERTILISATION
     Dosage: POWDER AND SOLVENT FOR SOLUTION FOR INJECTION
     Route: 058
     Dates: start: 20190914, end: 20190923
  4. OVITRELLE [Concomitant]
     Active Substance: CHORIOGONADOTROPIN ALFA
     Indication: IN VITRO FERTILISATION
     Dosage: AT 21:00 H
     Route: 058
     Dates: start: 20190924
  5. CETROTIDE [Concomitant]
     Active Substance: CETRORELIX ACETATE
     Indication: IN VITRO FERTILISATION
     Dosage: FROM DAY 4 OF STIMULATION INJECTIONS?POWDER AND SOLVENT FOR SOLUTION FOR INJECTION
     Route: 058
     Dates: start: 20190917, end: 20190924
  6. CRINONE [Concomitant]
     Active Substance: PROGESTERONE
     Indication: PRODUCT USED FOR UNKNOWN INDICATION
     Dosage: 1 PER VAGINA DAILY
     Route: 067
     Dates: start: 20190926, end: 20190930
  7. DIAZEMULS [Concomitant]
     Active Substance: DIAZEPAM
     Indication: SEDATION
     Route: 042
     Dates: start: 20190926

REACTIONS (3)
  - Deep vein thrombosis [Recovered/Resolved]
  - Peripheral swelling [Recovered/Resolved]
  - Limb discomfort [Recovered/Resolved]

NARRATIVE: CASE EVENT DATE: 20190928
